FAERS Safety Report 16271251 (Version 1)
Quarter: 2019Q2

REPORT INFORMATION
  Report Type: Spontaneous
  Country: FR (occurrence: FR)
  Receive Date: 20190503
  Receipt Date: 20190503
  Transmission Date: 20190711
  Serious: Yes (Death)
  Sender: FDA-Public Use
  Company Number: FR-BAUSCH-BL-2019-013074

PATIENT
  Age: 83 Year
  Sex: Male
  Weight: 76 kg

DRUGS (11)
  1. ALPRAZOLAM. [Suspect]
     Active Substance: ALPRAZOLAM
     Indication: ANXIETY DISORDER
     Route: 048
     Dates: end: 20190322
  2. TRAVATAN [Suspect]
     Active Substance: TRAVOPROST
     Indication: PRODUCT USED FOR UNKNOWN INDICATION
     Route: 047
     Dates: end: 20190412
  3. TRIATEC (RAMIPRIL) [Suspect]
     Active Substance: RAMIPRIL
     Indication: MYOCARDIAL INFARCTION
     Route: 048
     Dates: end: 20190322
  4. DECAPEPTYL [TRIPTORELIN EMBONATE] [Suspect]
     Active Substance: TRIPTORELIN PAMOATE
     Indication: PROSTATE CANCER
     Dosage: DURATION: 4 MONTHS 18 DAYS
     Route: 030
     Dates: start: 20181105, end: 20190322
  5. ANDROCUR [Suspect]
     Active Substance: CYPROTERONE ACETATE
     Indication: PROSTATE CANCER
     Dosage: DURATION: 4 MONTHS 18 DAYS
     Route: 048
     Dates: start: 20181105, end: 20190322
  6. CARTEOL LP [Suspect]
     Active Substance: CARTEOLOL HYDROCHLORIDE
     Indication: PRODUCT USED FOR UNKNOWN INDICATION
     Route: 047
     Dates: end: 20190412
  7. ELISOR [Suspect]
     Active Substance: PRAVASTATIN SODIUM
     Indication: MYOCARDIAL INFARCTION
     Dosage: DIVISIBLE
     Route: 048
     Dates: end: 20190322
  8. CARDENSIEL [Suspect]
     Active Substance: BISOPROLOL FUMARATE
     Indication: MYOCARDIAL INFARCTION
     Route: 048
     Dates: end: 20190322
  9. KARDEGIC [Suspect]
     Active Substance: ASPIRIN DL-LYSINE
     Indication: MYOCARDIAL INFARCTION
     Dosage: SACHET
     Route: 048
  10. KARDEGIC [Suspect]
     Active Substance: ASPIRIN DL-LYSINE
     Dosage: SACHET; DOSE REDUCED
     Route: 048
  11. SURBRONC [Suspect]
     Active Substance: AMBROXOL HYDROCHLORIDE
     Indication: CHRONIC OBSTRUCTIVE PULMONARY DISEASE
     Route: 048
     Dates: end: 20190322

REACTIONS (1)
  - Hepatitis fulminant [Fatal]

NARRATIVE: CASE EVENT DATE: 20190316
